FAERS Safety Report 6019010-6 (Version None)
Quarter: 2009Q1

REPORT INFORMATION
  Report Type: 
  Country: None (occurrence: None)
  Receive Date: 20081224
  Receipt Date: 20081219
  Transmission Date: 20090719
  Serious: Yes (Hospitalization, Other)
  Sender: FDA-Public Use
  Company Number: FR-NOVOPROD-282557

PATIENT
  Sex: Female

DRUGS (13)
  1. NOVOSEVEN [Suspect]
     Indication: POSTPARTUM HAEMORRHAGE
     Route: 042
     Dates: start: 20080823, end: 20080823
  2. NOVOSEVEN [Suspect]
     Route: 042
     Dates: start: 20080823, end: 20080823
  3. TARDYFERON [Suspect]
     Dosage: 2 TAB, QD
     Route: 048
  4. SPASFON [Concomitant]
     Dosage: 6 TAB, QD
     Route: 048
  5. MAGNE B6 [Concomitant]
     Dosage: 4 TAB, QD
     Route: 048
  6. TITANOREINE [Concomitant]
     Dosage: 3 LOCAL APPLICATIONS, QD
  7. TITANOREINE [Concomitant]
     Dosage: 3 SUPPOSITORIES, QD
  8. OXYTOCIN [Concomitant]
     Route: 042
  9. PROSTAGLANDINS [Concomitant]
     Route: 042
  10. RED BLOOD CELLS [Concomitant]
     Dosage: 15 PACKS
  11. FRESH FROZEN PLASMA [Concomitant]
     Dosage: 16 PACKS
  12. PLATELETS, CONCENTRATED [Concomitant]
  13. FIBRINOGEN [Concomitant]
     Dosage: 6 G, QD

REACTIONS (5)
  - ARTERIAL THROMBOSIS LIMB [None]
  - FLUID OVERLOAD [None]
  - HYPERTENSION [None]
  - OEDEMA [None]
  - PROTEINURIA [None]
